FAERS Safety Report 4293817-8 (Version None)
Quarter: 2004Q1

REPORT INFORMATION
  Report Type: 
  Country: None (occurrence: None)
  Receive Date: 20040211
  Receipt Date: 20040122
  Transmission Date: 20041129
  Serious: Yes (Other)
  Sender: FDA-Public Use
  Company Number: USA040157354

PATIENT
  Age: 56 Year
  Sex: Female
  Weight: 61 kg

DRUGS (10)
  1. FORTEO [Suspect]
     Indication: OSTEOPOROSIS
     Dates: start: 20031101
  2. DILANTIN [Concomitant]
  3. INDERAL LA [Concomitant]
  4. ESTROTEST [Concomitant]
  5. LIPITOR [Concomitant]
  6. PROCARDIA [Concomitant]
  7. NEXIUM [Concomitant]
  8. TYLENOL W/ CODEINE [Concomitant]
  9. ACTONEL [Concomitant]
  10. CLONIDINE [Concomitant]

REACTIONS (2)
  - RENAL FAILURE [None]
  - WHEELCHAIR USER [None]
